FAERS Safety Report 6530061-5 (Version None)
Quarter: 2009Q4

REPORT INFORMATION
  Report Type: 
  Country: None (occurrence: None)
  Receive Date: 20091231
  Receipt Date: 20091221
  Transmission Date: 20100525
  Serious: Yes (Death)
  Sender: FDA-Public Use
  Company Number: 2009AL007966

PATIENT
  Sex: Male

DRUGS (5)
  1. DIAZEPAM [Suspect]
  2. PAREGORIC LIQUID USP (ALPHARMA) (PAREGORIC LIQUID USP (ALPHARMA)) [Suspect]
  3. CODEINE [Concomitant]
  4. ETHANOL [Concomitant]
  5. CANNABIS [Concomitant]

REACTIONS (3)
  - ALCOHOL POISONING [None]
  - ASPIRATION [None]
  - SUBSTANCE ABUSE [None]
